FAERS Safety Report 10284423 (Version 2)
Quarter: 2014Q3

REPORT INFORMATION
  Report Type: Spontaneous
  Country: FR (occurrence: FR)
  Receive Date: 20140708
  Receipt Date: 20140710
  Transmission Date: 20150326
  Serious: Yes (Life-Threatening, Hospitalization, Other)
  Sender: FDA-Public Use
  Company Number: FR-ASTRAZENECA-2014SE48794

PATIENT
  Age: 101 Month
  Sex: Male
  Weight: 19 kg

DRUGS (7)
  1. ADVATE [Suspect]
     Active Substance: ANTIHEMOPHILIC FACTOR, HUMAN RECOMBINANT
     Indication: HAEMOPHILIA
     Dosage: 15000 UI AND THEN 1000 UI EVERY EIGHT HOURS FOR 48 HOURS
     Route: 042
     Dates: start: 20140522, end: 20140524
  2. SABRIL [Concomitant]
     Active Substance: VIGABATRIN
     Route: 048
  3. SCOPODERM [Concomitant]
     Active Substance: SCOPOLAMINE
     Route: 062
  4. SUFENTANIL MYLAN [Suspect]
     Active Substance: SUFENTANIL
     Indication: SEDATION
     Route: 042
     Dates: start: 20140522
  5. DEPAKINE [Concomitant]
     Active Substance: VALPROATE SODIUM
     Route: 048
  6. KEPPRA [Concomitant]
     Active Substance: LEVETIRACETAM
     Route: 048
  7. DIPRIVAN [Suspect]
     Active Substance: PROPOFOL
     Indication: SEDATION
     Route: 042
     Dates: start: 20140522

REACTIONS (6)
  - Hyporesponsive to stimuli [Unknown]
  - Somnolence [Unknown]
  - Breath sounds abnormal [Unknown]
  - Pulmonary oedema [Unknown]
  - Brain stem syndrome [Unknown]
  - Apnoeic attack [Recovered/Resolved]

NARRATIVE: CASE EVENT DATE: 201405
